FAERS Safety Report 13495831 (Version 3)
Quarter: 2017Q3

REPORT INFORMATION
  Report Type: Spontaneous
  Country: US (occurrence: US)
  Receive Date: 20170428
  Receipt Date: 20170705
  Transmission Date: 20171127
  Serious: Yes (Hospitalization)
  Sender: FDA-Public Use
  Company Number: US-PFIZER INC-2016533865

PATIENT
  Age: 68 Year
  Sex: Female
  Weight: 81.65 kg

DRUGS (8)
  1. OXYCODONE AND ACETAMINOPHEN [Concomitant]
     Active Substance: ACETAMINOPHEN\OXYCODONE HYDROCHLORIDE
     Indication: PAIN
     Dosage: 1 DF, AS NEEDED [OXYCODONE HYDROCHLORIDE: 10 MG]/ [PARACETAMOL: 325 MG] (Q6 HR PRN)
     Route: 048
     Dates: start: 20161108
  2. OXYCODONE [Concomitant]
     Active Substance: OXYCODONE
     Dosage: 100 MG, 4X/DAY
  3. LYRICA [Suspect]
     Active Substance: PREGABALIN
     Indication: PROCTALGIA
  4. CYMBALTA [Concomitant]
     Active Substance: DULOXETINE HYDROCHLORIDE
     Dosage: 60 MG, 1X/DAY (1 EVERY DAY)
  5. OCUFLOX [Concomitant]
     Active Substance: OFLOXACIN
     Dosage: 2 GTT, 4X/DAY (2 QTTS OU QID)
     Route: 047
     Dates: start: 20161108
  6. LACTOBACILLUS ACIDOPHILUS\LACTOBACILLUS BULGARICUS [Concomitant]
     Active Substance: LACTOBACILLUS ACIDOPHILUS\LACTOBACILLUS DELBRUECKII SUBSP. BULGARICUS
     Dosage: UNK, 1X/DAY
  7. LYRICA [Suspect]
     Active Substance: PREGABALIN
     Indication: FIBROMYALGIA
     Dosage: 150 MG, 2X/DAY
     Route: 048
     Dates: start: 20140516
  8. FENTANYL. [Concomitant]
     Active Substance: FENTANYL
     Indication: NEURALGIA
     Dosage: UNK (25 MCG/HR PT72) (APPLY Q 3DAYS)(25 CHANGE EVERY 3 DAYS)
     Route: 064
     Dates: start: 20161108

REACTIONS (2)
  - Hernia [Recovered/Resolved]
  - Bradyphrenia [Unknown]

NARRATIVE: CASE EVENT DATE: 20170317
